FAERS Safety Report 9915706 (Version 2)
Quarter: 2014Q2

REPORT INFORMATION
  Report Type: Spontaneous
  Country: IT (occurrence: None)
  Receive Date: 20140218
  Receipt Date: 20140415
  Transmission Date: 20141212
  Serious: Yes (Hospitalization)
  Sender: FDA-Public Use
  Company Number: 2178887

PATIENT
  Age: 71 Year
  Sex: Female

DRUGS (11)
  1. VANCOMYCIN HYDROCHLORIDE [Suspect]
     Indication: SEPSIS
     Dosage: 500 MG MILLIGRAM(S), 1 DAY, INTRAVENOUS (NOT OTHERWISE SPECIFIED)?
     Route: 042
     Dates: start: 20110803, end: 20110817
  2. LEVOXACIN [Suspect]
     Indication: SEPSIS
     Dosage: 1 DF DOSAGE FORM (UNKNOWN), INTRAVENOUS (NOT OTHERWISE SPECIFIED)?
     Route: 042
     Dates: start: 20110811, end: 20110817
  3. DELTACORTENE [Concomitant]
  4. FUROSEMIDE [Concomitant]
  5. CLEXANE [Concomitant]
  6. EUTIROX [Concomitant]
  7. PLAVIX [Concomitant]
  8. ATORVASTATIN [Concomitant]
  9. ACETYLSALICYLIC ACID [Concomitant]
  10. BISOPROLOL HEMIFUMARATE [Concomitant]
  11. FUROSEMIDE [Concomitant]

REACTIONS (2)
  - Leukopenia [None]
  - Neutropenia [None]
